FAERS Safety Report 20470692 (Version 2)
Quarter: 2022Q4

REPORT INFORMATION
  Report Type: Report from Study
  Country: GT (occurrence: GT)
  Receive Date: 20220214
  Receipt Date: 20221128
  Transmission Date: 20230112
  Serious: Yes (Other)
  Sender: FDA-Public Use
  Company Number: GT-NOVARTISPH-NVSC2022GT031340

PATIENT
  Age: 17 Year
  Sex: Male
  Weight: 56.689 kg

DRUGS (5)
  1. SACUBITRIL\VALSARTAN [Suspect]
     Active Substance: SACUBITRIL\VALSARTAN
     Indication: Hypertrophic cardiomyopathy
     Dosage: 50 MG, QD (APPROXIMATELY 3 MONTHS AGO)
     Route: 048
     Dates: start: 202111, end: 2022
  2. SACUBITRIL\VALSARTAN [Suspect]
     Active Substance: SACUBITRIL\VALSARTAN
     Dosage: 100 MG, QD
     Route: 048
     Dates: start: 202208, end: 20221018
  3. SACUBITRIL\VALSARTAN [Suspect]
     Active Substance: SACUBITRIL\VALSARTAN
     Dosage: 75 MG, QD (50 MG IN THE MORNING AND 25 MG AT NIGHT)
     Route: 048
     Dates: start: 20221018
  4. METOPROLOL [Concomitant]
     Active Substance: METOPROLOL
     Indication: Hypertrophic cardiomyopathy
     Dosage: 50 MG, Q12H
     Route: 048
     Dates: start: 202111
  5. SPIRONOLACTONE [Concomitant]
     Active Substance: SPIRONOLACTONE
     Indication: Hypertrophic cardiomyopathy
     Dosage: 25 MG, Q12H
     Route: 048
     Dates: start: 202111

REACTIONS (9)
  - Hypotension [Recovered/Resolved]
  - Syncope [Recovered/Resolved]
  - Cardiac disorder [Unknown]
  - Abdominal pain upper [Not Recovered/Not Resolved]
  - Headache [Not Recovered/Not Resolved]
  - Dizziness [Not Recovered/Not Resolved]
  - Wrong technique in product usage process [Unknown]
  - Product use in unapproved indication [Not Recovered/Not Resolved]
  - Inappropriate schedule of product administration [Recovered/Resolved]

NARRATIVE: CASE EVENT DATE: 20211101
